FAERS Safety Report 13102078 (Version 2)
Quarter: 2017Q1

REPORT INFORMATION
  Report Type: Spontaneous
  Country: FR (occurrence: FR)
  Receive Date: 20170110
  Receipt Date: 20170307
  Transmission Date: 20170428
  Serious: Yes (Other)
  Sender: FDA-Public Use
  Company Number: FR-JNJFOC-20170106030

PATIENT
  Age: 69 Year
  Sex: Male

DRUGS (8)
  1. YONDELIS [Suspect]
     Active Substance: TRABECTEDIN
     Indication: HAEMANGIOPERICYTOMA
     Dosage: 24-HOUR INFUSION, CYCLE 1
     Route: 042
     Dates: start: 20161107
  2. YONDELIS [Suspect]
     Active Substance: TRABECTEDIN
     Indication: HAEMANGIOPERICYTOMA
     Dosage: CYCLE 4
     Route: 042
     Dates: start: 20170130
  3. COTAREG [Concomitant]
     Active Substance: HYDROCHLOROTHIAZIDE\VALSARTAN
     Indication: PRODUCT USED FOR UNKNOWN INDICATION
     Route: 065
  4. RILMENIDINE [Concomitant]
     Active Substance: RILMENIDINE
     Indication: PRODUCT USED FOR UNKNOWN INDICATION
     Route: 065
  5. SIMVASTATIN. [Concomitant]
     Active Substance: SIMVASTATIN
     Indication: PRODUCT USED FOR UNKNOWN INDICATION
     Route: 065
  6. ASPEGIC [Concomitant]
     Active Substance: ASPIRIN DL-LYSINE
     Indication: PRODUCT USED FOR UNKNOWN INDICATION
     Route: 065
  7. YONDELIS [Suspect]
     Active Substance: TRABECTEDIN
     Indication: HAEMANGIOPERICYTOMA
     Dosage: CYCLE 3
     Route: 042
     Dates: start: 20170102
  8. YONDELIS [Suspect]
     Active Substance: TRABECTEDIN
     Indication: HAEMANGIOPERICYTOMA
     Dosage: CYCLE 2
     Route: 042
     Dates: start: 20161205

REACTIONS (1)
  - Infusion site reaction [Not Recovered/Not Resolved]
